FAERS Safety Report 11449461 (Version 1)
Quarter: 2015Q3

REPORT INFORMATION
  Report Type: Spontaneous
  Country: US (occurrence: US)
  Receive Date: 20150903
  Receipt Date: 20150903
  Transmission Date: 20151125
  Serious: No
  Sender: FDA-Public Use
  Company Number: US-BRISTOL-MYERS SQUIBB COMPANY-BMS-2015-058399

PATIENT
  Sex: Female
  Weight: 82 kg

DRUGS (1)
  1. ELIQUIS [Suspect]
     Active Substance: APIXABAN
     Indication: SPLENIC INFARCTION
     Dosage: 5 MG, BID
     Route: 065
     Dates: start: 20141210

REACTIONS (3)
  - Off label use [Unknown]
  - Dental caries [Unknown]
  - Tooth injury [Unknown]
